FAERS Safety Report 5295762-8 (Version None)
Quarter: 2007Q2

REPORT INFORMATION
  Report Type: 
  Country: None (occurrence: None)
  Receive Date: 20070406
  Receipt Date: 20070326
  Transmission Date: 20071010
  Serious: Yes (Other)
  Sender: FDA-Public Use
  Company Number: 2007SP005575

PATIENT
  Age: 42 Year
  Sex: Male
  Weight: 81 kg

DRUGS (1)
  1. DESLORATADINE [Suspect]
     Indication: RHINITIS ALLERGIC
     Dosage: 5 MG; QD; PO
     Route: 048
     Dates: start: 20070323, end: 20070325

REACTIONS (3)
  - FEELING ABNORMAL [None]
  - HYPOREFLEXIA [None]
  - ROAD TRAFFIC ACCIDENT [None]
